FAERS Safety Report 24315482 (Version 1)
Quarter: 2024Q3

REPORT INFORMATION
  Report Type: Spontaneous
  Country: US (occurrence: US)
  Receive Date: 20240913
  Receipt Date: 20240913
  Transmission Date: 20241017
  Serious: No
  Sender: MERCK
  Company Number: US-009507513-2409USA003580

PATIENT
  Sex: Female

DRUGS (1)
  1. TRUSOPT [Suspect]
     Active Substance: DORZOLAMIDE HYDROCHLORIDE
     Dosage: UNK
     Dates: end: 202406

REACTIONS (3)
  - Product dose omission issue [Unknown]
  - Product availability issue [Unknown]
  - No adverse event [Unknown]

NARRATIVE: CASE EVENT DATE: 20240601
